FAERS Safety Report 5875860-8 (Version None)
Quarter: 2008Q3

REPORT INFORMATION
  Report Type: 
  Country: None (occurrence: None)
  Receive Date: 20080909
  Receipt Date: 20080828
  Transmission Date: 20090109
  Serious: Yes (Hospitalization)
  Sender: FDA-Public Use
  Company Number: JP-PFIZER INC-2008073600

PATIENT
  Age: 65 Year

DRUGS (1)
  1. CELECOX [Suspect]
     Dosage: DAILY DOSE:200MG
     Route: 048

REACTIONS (1)
  - SKIN DISORDER [None]
